FAERS Safety Report 18626342 (Version 5)
Quarter: 2021Q2

REPORT INFORMATION
  Report Type: Report from Study
  Country: None (occurrence: CA)
  Receive Date: 20201216
  Receipt Date: 20210628
  Transmission Date: 20210717
  Serious: Yes (Hospitalization)
  Sender: FDA-Public Use
  Company Number: CA-ABBVIE-20K-028-3648510-00

PATIENT
  Age: 48 Year
  Sex: Male

DRUGS (8)
  1. FLAGYL [Suspect]
     Active Substance: METRONIDAZOLE\METRONIDAZOLE HYDROCHLORIDE
     Indication: ULCER
  2. AMOXICILLIN. [Suspect]
     Active Substance: AMOXICILLIN
     Indication: DIVERTICULITIS
  3. HUMIRA [Suspect]
     Active Substance: ADALIMUMAB
     Indication: ANKYLOSING SPONDYLITIS
     Route: 058
     Dates: start: 20200723, end: 20201129
  4. HUMIRA [Suspect]
     Active Substance: ADALIMUMAB
     Route: 058
  5. SULFAPRIM [Suspect]
     Active Substance: SULFAMETHOXAZOLE\TRIMETHOPRIM
     Indication: DIVERTICULITIS
     Route: 048
     Dates: start: 2020
  6. HUMIRA [Suspect]
     Active Substance: ADALIMUMAB
     Route: 058
     Dates: start: 20201227, end: 20210606
  7. FLAGYL [Suspect]
     Active Substance: METRONIDAZOLE\METRONIDAZOLE HYDROCHLORIDE
     Indication: DIVERTICULITIS
     Route: 065
     Dates: start: 2020
  8. AMOXICILLIN. [Suspect]
     Active Substance: AMOXICILLIN
     Indication: ULCER
     Route: 065
     Dates: start: 2020

REACTIONS (15)
  - Fatigue [Unknown]
  - Illness [Unknown]
  - Ulcer [Not Recovered/Not Resolved]
  - Abdominal pain lower [Not Recovered/Not Resolved]
  - Clostridium difficile infection [Not Recovered/Not Resolved]
  - Toxic shock syndrome [Recovered/Resolved]
  - Asthenia [Unknown]
  - Faeces discoloured [Unknown]
  - Scoliosis [Not Recovered/Not Resolved]
  - Musculoskeletal stiffness [Not Recovered/Not Resolved]
  - Vomiting [Not Recovered/Not Resolved]
  - Vomiting [Recovered/Resolved]
  - Feeling abnormal [Not Recovered/Not Resolved]
  - Depressed mood [Not Recovered/Not Resolved]
  - Dental caries [Not Recovered/Not Resolved]

NARRATIVE: CASE EVENT DATE: 2020
